FAERS Safety Report 8403312-X (Version None)
Quarter: 2012Q2

REPORT INFORMATION
  Report Type: 
  Country: None (occurrence: None)
  Receive Date: 20120601
  Receipt Date: 20100224
  Transmission Date: 20120825
  Serious: Yes (Death, Other)
  Sender: FDA-Public Use
  Company Number: JP-BRISTOL-MYERS SQUIBB COMPANY-14960579

PATIENT
  Age: 54 Year
  Sex: Male

DRUGS (8)
  1. AKINETON [Concomitant]
     Dosage: GRANULE
     Route: 048
     Dates: end: 20100120
  2. ABILIFY [Suspect]
     Indication: DEPRESSION
     Route: 048
     Dates: start: 20090915, end: 20100120
  3. RISPERDAL [Suspect]
     Indication: SEDATION
     Dosage: GRANULE; REGIMEN 2- 1.67 TID UNK-20JAN2010
     Route: 048
     Dates: start: 20000831, end: 20100120
  4. LULLAN [Suspect]
     Indication: MIDDLE INSOMNIA
     Dosage: TABS
     Route: 048
     Dates: start: 20080916, end: 20100120
  5. ZOLPIDEM [Concomitant]
     Dates: start: 20090526, end: 20100120
  6. ABILIFY [Suspect]
     Indication: SCHIZOPHRENIA
     Route: 048
     Dates: start: 20090915, end: 20100120
  7. DEPAS [Concomitant]
     Dosage: GRANULE
     Route: 048
     Dates: start: 20081021, end: 20100120
  8. RHYTHMY [Concomitant]
     Dosage: TAB
     Dates: start: 20060824, end: 20100120

REACTIONS (2)
  - SUDDEN DEATH [None]
  - PNEUMONIA [None]
